FAERS Safety Report 7037593-4 (Version None)
Quarter: 2010Q4

REPORT INFORMATION
  Report Type: 
  Country: None (occurrence: None)
  Receive Date: 20101011
  Receipt Date: 20100929
  Transmission Date: 20110411
  Serious: Yes (Hospitalization, Other)
  Sender: FDA-Public Use
  Company Number: PHHY2010AT65167

PATIENT
  Age: 56 Year
  Sex: Male

DRUGS (4)
  1. RASILEZ [Suspect]
     Indication: HYPERTENSION
     Dosage: 300 MG, DAILY
     Route: 048
     Dates: start: 20090701
  2. SPASMOLYT [Concomitant]
  3. VALACYCLOVIR [Concomitant]
  4. NOMEXOR [Concomitant]
     Indication: HYPERTENSION
     Dosage: UNK
     Dates: start: 20090101

REACTIONS (4)
  - BLOOD CREATININE INCREASED [None]
  - DERMATITIS BULLOUS [None]
  - ENDOCARDITIS [None]
  - RENAL FAILURE [None]
